FAERS Safety Report 5719506-8 (Version None)
Quarter: 2008Q2

REPORT INFORMATION
  Report Type: 
  Country: None (occurrence: None)
  Receive Date: 20080428
  Receipt Date: 20070831
  Transmission Date: 20081010
  Serious: No
  Sender: FDA-Public Use
  Company Number: A0649478A

PATIENT
  Age: 44 Year
  Sex: Female

DRUGS (3)
  1. AMERGE [Suspect]
     Indication: MIGRAINE
     Dosage: 1MG AS REQUIRED
     Route: 048
     Dates: start: 20070126, end: 20070202
  2. IMITREX [Suspect]
     Indication: MIGRAINE
     Dosage: 50MG AS REQUIRED
     Route: 048
     Dates: start: 20070728, end: 20070728
  3. AXERT [Concomitant]

REACTIONS (4)
  - DIZZINESS [None]
  - DRUG INEFFECTIVE [None]
  - NAUSEA [None]
  - VOMITING [None]
